FAERS Safety Report 9334175 (Version 1)
Quarter: 2013Q2

REPORT INFORMATION
  Report Type: Spontaneous
  Country: US (occurrence: US)
  Receive Date: 20130606
  Receipt Date: 20130606
  Transmission Date: 20140414
  Serious: Yes (Hospitalization)
  Sender: FDA-Public Use
  Company Number: US-AMGEN-USASP2013008271

PATIENT
  Age: 78 Year
  Sex: Male
  Weight: 81.63 kg

DRUGS (5)
  1. PROLIA [Suspect]
     Indication: OSTEOPOROSIS
     Dosage: 60 MG, UNK
     Route: 058
     Dates: start: 20121205, end: 20130311
  2. ALLOPURINOL [Concomitant]
     Indication: GOUT
     Dosage: 100 MG, UNK
     Route: 048
  3. METOPROLOL [Concomitant]
     Indication: HYPERTENSION
     Dosage: 25 UNK, BID
     Route: 048
  4. SIMVASTATIN [Concomitant]
     Indication: HYPERCHOLESTEROLAEMIA
     Dosage: 10 UNK, QD
     Route: 048
  5. CALCITRIOL [Concomitant]
     Indication: VITAMIN D
     Dosage: 0.25 UNK, QD

REACTIONS (2)
  - Hypocalcaemia [Recovering/Resolving]
  - Hypercalcaemia [Recovered/Resolved]
